FAERS Safety Report 21826297 (Version 1)
Quarter: 2023Q1

REPORT INFORMATION
  Report Type: Spontaneous
  Country: FR (occurrence: FR)
  Receive Date: 20230106
  Receipt Date: 20230106
  Transmission Date: 20230418
  Serious: Yes (Hospitalization)
  Sender: FDA-Public Use
  Company Number: None

PATIENT
  Age: 77 Year
  Sex: Male
  Weight: 71 kg

DRUGS (3)
  1. SULFAMETHOXAZOLE\TRIMETHOPRIM [Suspect]
     Active Substance: SULFAMETHOXAZOLE\TRIMETHOPRIM
     Indication: Staphylococcal infection
     Dosage: 6 DF, QD
     Route: 048
     Dates: start: 20220720, end: 20220805
  2. RIFAMPIN [Suspect]
     Active Substance: RIFAMPIN
     Indication: Staphylococcal infection
     Dosage: 900 DF, QD
     Route: 048
     Dates: start: 20220720, end: 20220805
  3. RIFAMPIN [Suspect]
     Active Substance: RIFAMPIN
     Dosage: 900 DF, QD
     Route: 048
     Dates: start: 202208, end: 20220823

REACTIONS (3)
  - Thrombocytopenic purpura [Recovered/Resolved]
  - Rash [Recovered/Resolved]
  - Pyrexia [Recovered/Resolved]

NARRATIVE: CASE EVENT DATE: 20220801
